FAERS Safety Report 14159726 (Version 1)
Quarter: 2017Q4

REPORT INFORMATION
  Report Type: Spontaneous
  Country: US (occurrence: US)
  Receive Date: 20171103
  Receipt Date: 20171103
  Transmission Date: 20180321
  Serious: No
  Sender: FDA-Public Use
  Company Number: US-AMGEN-USASP2017094491

PATIENT
  Sex: Male

DRUGS (3)
  1. EPOGEN [Suspect]
     Active Substance: ERYTHROPOIETIN
     Indication: CHRONIC KIDNEY DISEASE
     Dosage: UNK
     Route: 065
     Dates: start: 2015
  2. EPOGEN [Suspect]
     Active Substance: ERYTHROPOIETIN
     Dosage: 4000 UNIT, UNK
     Route: 058
     Dates: start: 20170606
  3. EPOGEN [Suspect]
     Active Substance: ERYTHROPOIETIN
     Dosage: UNK
     Route: 065
     Dates: start: 20170523

REACTIONS (2)
  - Energy increased [Recovered/Resolved]
  - Malaise [Recovered/Resolved]

NARRATIVE: CASE EVENT DATE: 20170606
